FAERS Safety Report 5306170-5 (Version None)
Quarter: 2007Q2

REPORT INFORMATION
  Report Type: 
  Country: None (occurrence: None)
  Receive Date: 20070424
  Receipt Date: 20070419
  Transmission Date: 20071010
  Serious: Yes (Life-Threatening)
  Sender: FDA-Public Use
  Company Number: JP-SANOFI-SYNTHELABO-F01200600723

PATIENT
  Sex: Female
  Weight: 53 kg

DRUGS (3)
  1. LEUCOVORIN CALCIUM [Suspect]
     Dosage: 275MG/BODY=193.7MG/M2
     Route: 042
     Dates: start: 20050823, end: 20050824
  2. FLUOROURACIL [Suspect]
     Dosage: 500MG/BODY=352.1MG/M2 IN BOLUS ON DAY 1 THEN 2750MG/BODY=1936.6MG/M2 AS CONTINUOUS INFUSION
     Route: 042
     Dates: start: 20050823, end: 20050824
  3. OXALIPLATIN [Suspect]
     Indication: COLON CANCER
     Dosage: 100MG/BODY=70.4MG/M2
     Route: 042
     Dates: start: 20050823, end: 20050823

REACTIONS (2)
  - CEREBRAL INFARCTION [None]
  - PNEUMONIA [None]
